FAERS Safety Report 8535110-0 (Version None)
Quarter: 2012Q3

REPORT INFORMATION
  Report Type: 
  Country: None (occurrence: None)
  Receive Date: 20120724
  Receipt Date: 20080531
  Transmission Date: 20120928
  Serious: Yes (Other)
  Sender: FDA-Public Use
  Company Number: CO-PFIZER INC-2012177703

PATIENT
  Age: 66 Year
  Sex: Female

DRUGS (4)
  1. ACETYLSALICYLIC ACID [Concomitant]
     Dosage: 30 MG, 1X/DAY
     Route: 048
  2. OLMESARTAN MEDOXOMIL [Suspect]
     Dosage: 20 MG, UNK
     Route: 048
  3. METOPROLOL [Concomitant]
     Dosage: 50 MG, 2X/DAY
     Route: 048
  4. LIPITOR [Suspect]
     Dosage: 20 MG, 1X/DAY
     Route: 048

REACTIONS (1)
  - WHEEZING [None]
